FAERS Safety Report 7029450 (Version 4)
Quarter: 2016Q3

REPORT INFORMATION
  Report Type: Report from Study
  Country: JP (occurrence: JP)
  Receive Date: 20090622
  Receipt Date: 20160714
  Transmission Date: 20161109
  Serious: Yes (Death, Hospitalization)
  Sender: FDA-Public Use
  Company Number: JP-NOVOPROD-288308

PATIENT
  Age: 11 Year
  Sex: Female
  Weight: 30 kg

DRUGS (3)
  1. PL [Concomitant]
     Active Substance: ACETAMINOPHEN\CAFFEINE\PROMETHAZINE\SALICYLAMIDE
     Dosage: UNK
     Dates: start: 20081209
  2. NORDITROPIN S CHU [Suspect]
     Active Substance: SOMATROPIN
     Indication: TURNER^S SYNDROME
     Dosage: 1.4 MG - 1.8 MG DAILY
     Route: 058
     Dates: start: 20060517, end: 20081208
  3. CLARITH [Concomitant]
     Active Substance: CLARITHROMYCIN
     Indication: INFLUENZA
     Dosage: UNKNOWN
     Route: 065
     Dates: start: 20081209

REACTIONS (3)
  - Influenza [Recovered/Resolved with Sequelae]
  - Liver disorder [Recovering/Resolving]
  - Aplastic anaemia [Fatal]

NARRATIVE: CASE EVENT DATE: 20090122
